FAERS Safety Report 9501055 (Version 1)
Quarter: 2013Q1

REPORT INFORMATION
  Report Type: Spontaneous
  Country: US (occurrence: None)
  Receive Date: 20130107
  Receipt Date: 20130107
  Transmission Date: 20140127
  Serious: No
  Sender: FDA-Public Use
  Company Number: PHEH2012US018840

PATIENT
  Age: 23 Year
  Sex: Female
  Weight: 61.7 kg

DRUGS (5)
  1. GILENYA (FTY) CAPSULE, 0.5MG [Suspect]
     Indication: MULTIPLE SCLEROSIS
     Route: 048
     Dates: start: 20120925
  2. PERCOCET [Concomitant]
  3. LORAZEPAM (LORAZEPAM) [Concomitant]
  4. VITAMIN D (ERGOCALCIFEROL) [Concomitant]
  5. ALBUTEROL (SALBUTAMOL) INHALER [Concomitant]

REACTIONS (1)
  - Fatigue [None]
